FAERS Safety Report 6130959-6 (Version None)
Quarter: 2009Q1

REPORT INFORMATION
  Report Type: 
  Country: None (occurrence: None)
  Receive Date: 20090323
  Receipt Date: 20090305
  Transmission Date: 20090719
  Serious: Yes (Hospitalization)
  Sender: FDA-Public Use
  Company Number: 187481ISR

PATIENT
  Age: 65 Year
  Sex: Male

DRUGS (12)
  1. BISOPROLOL FUMARATE [Suspect]
     Dosage: ORAL
     Route: 048
     Dates: start: 20081124
  2. ATORVASTATIN CALCIUM [Suspect]
     Dosage: ORAL
     Route: 048
     Dates: start: 20081124
  3. OMEPRAZOLE [Suspect]
     Dosage: ORAL
     Route: 048
     Dates: start: 20081124
  4. ACETYLSALICYLATE LYSINE [Suspect]
     Indication: MYOCARDIAL INFARCTION
     Dosage: ORAL
     Route: 048
     Dates: start: 20081124
  5. ENOXAPARIN SODIUM [Suspect]
     Indication: MYOCARDIAL INFARCTION
     Dosage: SUBCUTANEOUS
     Route: 058
     Dates: start: 20081128, end: 20081206
  6. SPIRONOLACTONE [Suspect]
     Indication: HYPERTENSION
     Dosage: ORAL
     Route: 048
     Dates: end: 20081205
  7. BROMAZEPAM [Suspect]
     Indication: ANXIETY
     Dosage: (12 MG) ORAL
     Route: 048
     Dates: start: 20081127, end: 20081205
  8. VITAMIN B1 AND B6 [Suspect]
     Indication: ASTHENIA
     Dosage: ORAL
     Route: 048
     Dates: start: 20081127, end: 20081205
  9. NICOTINE [Suspect]
     Indication: SMOKING CESSATION THERAPY
     Dosage: TRANSDERMAL
     Route: 062
     Dates: start: 20081126, end: 20081204
  10. FUROSEMIDE [Suspect]
     Indication: HYPERTENSION
     Dosage: ORAL
     Route: 048
     Dates: start: 20081124, end: 20081129
  11. CLOPIDOGREL [Suspect]
     Indication: MYOCARDIAL INFARCTION
     Dosage: ORAL
     Route: 048
     Dates: start: 20081124
  12. ESOMEPRAZOLE MAGNESIUM [Suspect]
     Dosage: ORAL
     Route: 048

REACTIONS (3)
  - ANXIETY [None]
  - ASTHENIA [None]
  - RASH MORBILLIFORM [None]
